FAERS Safety Report 7691811-8 (Version None)
Quarter: 2011Q3

REPORT INFORMATION
  Report Type: 
  Country: None (occurrence: None)
  Receive Date: 20110818
  Receipt Date: 20110811
  Transmission Date: 20111222
  Serious: Yes (Hospitalization)
  Sender: FDA-Public Use
  Company Number: US-B.I. PHARMACEUTICALS,INC./RIDGEFIELD-2011-BP-19790BP

PATIENT
  Sex: Male

DRUGS (9)
  1. LISINOPRIL [Concomitant]
     Indication: HYPERTENSION
     Dosage: 20 MG
  2. PRADAXA [Suspect]
     Indication: ATRIAL FIBRILLATION
     Dosage: 300 MG
     Route: 048
     Dates: start: 20110302, end: 20110511
  3. CAPTOPRIL [Concomitant]
     Indication: HYPERTENSION
     Dosage: 300 MG
  4. KEPPRA [Concomitant]
     Indication: CONVULSION
  5. LAMICTAL [Concomitant]
     Indication: CONVULSION
     Dosage: 200 MG
  6. CARBATROL [Concomitant]
     Indication: CONVULSION
     Dosage: 6.25 MG
  7. NORVASC [Concomitant]
     Indication: HYPERTENSION
     Dosage: 5 MG
  8. PRAVASTATIN [Concomitant]
     Indication: BLOOD CHOLESTEROL INCREASED
  9. COUMADIN [Concomitant]
     Indication: ATRIAL FIBRILLATION

REACTIONS (1)
  - PULMONARY HAEMORRHAGE [None]
